FAERS Safety Report 19058753 (Version 6)
Quarter: 2021Q2

REPORT INFORMATION
  Report Type: Spontaneous
  Country: US (occurrence: US)
  Receive Date: 20210325
  Receipt Date: 20210427
  Transmission Date: 20210717
  Serious: Yes (Other)
  Sender: FDA-Public Use
  Company Number: NVSC2021US067741

PATIENT
  Sex: Female

DRUGS (2)
  1. TRAVATAN Z [Suspect]
     Active Substance: TRAVOPROST
     Indication: PRODUCT USED FOR UNKNOWN INDICATION
     Dosage: UNK UNK, QD
     Route: 065
  2. CARTEOLOL [Concomitant]
     Active Substance: CARTEOLOL
     Indication: PRODUCT USED FOR UNKNOWN INDICATION
     Dosage: UNK
     Route: 065

REACTIONS (14)
  - Drug intolerance [Unknown]
  - Eye colour change [Unknown]
  - Hypertension [Unknown]
  - Neoplasm malignant [Unknown]
  - Blindness [Unknown]
  - Glaucoma [Unknown]
  - Incorrect dose administered [Unknown]
  - Drug ineffective [Unknown]
  - Feeling abnormal [Unknown]
  - Product container issue [Unknown]
  - Wrong technique in product usage process [Unknown]
  - Product quality issue [Unknown]
  - Product dose omission issue [Unknown]
  - Eye pruritus [Unknown]
